FAERS Safety Report 18061326 (Version 1)
Quarter: 2020Q3

REPORT INFORMATION
  Report Type: Spontaneous
  Country: CA (occurrence: CA)
  Receive Date: 20200723
  Receipt Date: 20200723
  Transmission Date: 20201103
  Serious: Yes (Death, Hospitalization, Other)
  Sender: FDA-Public Use
  Company Number: CA-TEVA-2020-CA-1803248

PATIENT
  Sex: Male
  Weight: 75 kg

DRUGS (12)
  1. SYNTHROID [Concomitant]
     Active Substance: LEVOTHYROXINE SODIUM
     Indication: THYROID THERAPY
     Dosage: 1 DOSAGE FORMS DAILY;
     Route: 065
  2. STATEX [Concomitant]
     Indication: PAIN
     Route: 065
  3. RABEPRAZOLE [Suspect]
     Active Substance: RABEPRAZOLE
     Indication: PRODUCT USED FOR UNKNOWN INDICATION
     Dosage: 2 DOSAGE FORMS DAILY;
     Route: 065
  4. INLYTA [Concomitant]
     Active Substance: AXITINIB
     Dosage: 3 DOSAGE FORMS DAILY;
     Route: 065
  5. RIVA PREGABALIN [Concomitant]
     Indication: PRODUCT USED FOR UNKNOWN INDICATION
     Dosage: 2 DOSAGE FORMS DAILY;
     Route: 065
  6. INLYTA [Concomitant]
     Active Substance: AXITINIB
     Indication: RENAL CELL CARCINOMA
     Dosage: 3 DOSAGE FORMS DAILY;
     Route: 048
  7. PROCHLORAZINE [Concomitant]
     Indication: PRODUCT USED FOR UNKNOWN INDICATION
     Route: 065
  8. JAMP DICYCLOMINE HCL [Concomitant]
     Indication: PRODUCT USED FOR UNKNOWN INDICATION
     Route: 065
  9. VENOFER [Concomitant]
     Active Substance: IRON SUCROSE
     Indication: PRODUCT USED FOR UNKNOWN INDICATION
     Route: 042
  10. RIVA?BACLOFEN [Concomitant]
     Indication: PRODUCT USED FOR UNKNOWN INDICATION
     Dosage: 2 DOSAGE FORMS DAILY;
     Route: 065
  11. SANDOZ IRBESARTAN [Suspect]
     Active Substance: IRBESARTAN
     Indication: PRODUCT USED FOR UNKNOWN INDICATION
     Dosage: 1 DOSAGE FORMS DAILY;
     Route: 065
  12. MORPHINE SULFATE. [Concomitant]
     Active Substance: MORPHINE SULFATE
     Indication: PRODUCT USED FOR UNKNOWN INDICATION
     Dosage: 4 DOSAGE FORMS DAILY;
     Route: 065

REACTIONS (12)
  - Blood bilirubin increased [Fatal]
  - Drug hypersensitivity [Fatal]
  - Hypothyroidism [Fatal]
  - Cellulitis [Fatal]
  - General physical health deterioration [Fatal]
  - Pain [Fatal]
  - Arteriosclerosis [Fatal]
  - Hypertension [Fatal]
  - Renal failure [Fatal]
  - Dyslipidaemia [Fatal]
  - Diabetes mellitus [Fatal]
  - Metastatic renal cell carcinoma [Fatal]
